FAERS Safety Report 13938947 (Version 1)
Quarter: 2017Q3

REPORT INFORMATION
  Report Type: Spontaneous
  Country: US (occurrence: None)
  Receive Date: 20170906
  Receipt Date: 20170906
  Transmission Date: 20171127
  Serious: No
  Sender: FDA-Public Use
  Company Number: None

PATIENT
  Age: 83 Year
  Sex: Female

DRUGS (1)
  1. CAPECITABINE 150 MG MYLAN PHARMACEUTICALS INC. [Suspect]
     Active Substance: CAPECITABINE
     Indication: BREAST CANCER FEMALE
     Route: 048
     Dates: start: 20170802

REACTIONS (5)
  - Gastrointestinal haemorrhage [None]
  - Therapy cessation [None]
  - Drug intolerance [None]
  - Pyrexia [None]
  - Sepsis [None]

NARRATIVE: CASE EVENT DATE: 20170831
